FAERS Safety Report 8998497 (Version 1)
Quarter: 2013Q1

REPORT INFORMATION
  Report Type: Report from Study
  Country: US (occurrence: US)
  Receive Date: 20130103
  Receipt Date: 20130103
  Transmission Date: 20140127
  Serious: Yes (Other)
  Sender: FDA-Public Use
  Company Number: US-ROCHE-1173583

PATIENT
  Age: 75 Year
  Sex: Male
  Weight: 74.9 kg

DRUGS (1)
  1. VISMODEGIB [Suspect]
     Indication: MALIGNANT NEOPLASM PROGRESSION
     Route: 048
     Dates: start: 20121213

REACTIONS (1)
  - Hyperbilirubinaemia [Not Recovered/Not Resolved]
